FAERS Safety Report 5907992-X (Version None)
Quarter: 2008Q4

REPORT INFORMATION
  Report Type: 
  Country: None (occurrence: None)
  Receive Date: 20081003
  Receipt Date: 20080929
  Transmission Date: 20090506
  Serious: No
  Sender: FDA-Public Use
  Company Number: US-B.I. PHARMACEUTICALS,INC./RIDGEFIELD-2008-BP-14106BP

PATIENT
  Sex: Female

DRUGS (5)
  1. SPIRIVA [Suspect]
     Indication: LUNG LOBECTOMY
     Dosage: 18MCG
     Route: 055
  2. SYNTHROID [Concomitant]
     Indication: GOUT
  3. ENALAPRIL MALEATE [Concomitant]
     Indication: HYPERTENSION
  4. RED YEAST RICE [Concomitant]
     Indication: BLOOD CHOLESTEROL
  5. SUPPLEMENTS [Concomitant]

REACTIONS (1)
  - DYSPNOEA [None]
